FAERS Safety Report 10005167 (Version 5)
Quarter: 2014Q2

REPORT INFORMATION
  Report Type: Report from Study
  Country: US (occurrence: US)
  Receive Date: 20140312
  Receipt Date: 20140616
  Transmission Date: 20141212
  Serious: Yes (Hospitalization)
  Sender: FDA-Public Use
  Company Number: US-ABBVIE-14P-163-1209314-00

PATIENT
  Age: 39 Year
  Sex: Female

DRUGS (2)
  1. HUMIRA [Suspect]
     Indication: PSORIASIS
     Dates: start: 20131231
  2. VIIBRYD [Concomitant]
     Indication: DEPRESSION

REACTIONS (10)
  - Malaise [Not Recovered/Not Resolved]
  - Device issue [Unknown]
  - Cholecystectomy [Unknown]
  - Abdominal infection [Unknown]
  - Psoriasis [Unknown]
  - Pruritus [Recovering/Resolving]
  - Dry skin [Not Recovered/Not Resolved]
  - Drug dose omission [Recovered/Resolved]
  - Injection site reaction [Recovered/Resolved]
  - Injection site reaction [Recovering/Resolving]
